FAERS Safety Report 8825665 (Version 1)
Quarter: 2012Q4

REPORT INFORMATION
  Report Type: 
  Country: US (occurrence: US)
  Receive Date: 20121004
  Receipt Date: 20121004
  Transmission Date: 20130627
  Serious: Yes (Death)
  Sender: FDA-Public Use
  Company Number: US-009507513-1209USA003071

PATIENT
  Age: 24 Year
  Sex: Female

DRUGS (3)
  1. ISENTRESS [Suspect]
     Indication: HIV INFECTION
     Dosage: 800 mg, qd
     Route: 048
  2. INTELENCE [Suspect]
     Indication: HIV INFECTION
     Dosage: 400 mg, qd
     Route: 048
  3. EPZICOM [Suspect]
     Indication: HIV INFECTION
     Dosage: 1 DF, qd
     Route: 048

REACTIONS (7)
  - Death [Fatal]
  - Incision site haemorrhage [Fatal]
  - Hysterectomy [Fatal]
  - Disseminated intravascular coagulation [Fatal]
  - Respiratory failure [Fatal]
  - Intestinal ischaemia [Fatal]
  - Maternal exposure during pregnancy [Fatal]
